FAERS Safety Report 8153886-1 (Version None)
Quarter: 2012Q1

REPORT INFORMATION
  Report Type: 
  Country: None (occurrence: None)
  Receive Date: 20120221
  Receipt Date: 20120209
  Transmission Date: 20120608
  Serious: Yes (Hospitalization)
  Sender: FDA-Public Use
  Company Number: CA-ELI_LILLY_AND_COMPANY-CA201202003046

PATIENT
  Age: 45 Year
  Sex: Male

DRUGS (13)
  1. HYDROMORPH [Concomitant]
     Dosage: UNK, UNKNOWN
     Route: 065
  2. IMOVANE [Concomitant]
     Dosage: UNK, UNKNOWN
     Route: 065
  3. MAGNESIUM [Concomitant]
     Dosage: UNK, UNKNOWN
     Route: 065
  4. VITAMIN D [Concomitant]
     Dosage: UNK, UNKNOWN
     Route: 065
  5. LOVAZA [Concomitant]
     Dosage: UNK, UNKNOWN
     Route: 065
  6. FORTEO [Suspect]
     Indication: OSTEOPOROSIS
     Dosage: 20 UG, QD
     Route: 058
     Dates: start: 20110826, end: 20120101
  7. FORTEO [Suspect]
     Dosage: 20 UG, QD
     Route: 058
  8. LYRICA [Concomitant]
     Dosage: UNK, UNKNOWN
     Route: 065
  9. DILAUDID [Concomitant]
     Dosage: UNK, UNKNOWN
     Route: 065
  10. DOCUSATE SODIUM [Concomitant]
     Dosage: UNK, UNKNOWN
     Route: 065
  11. TRAZODONE HYDROCHLORIDE [Concomitant]
     Dosage: UNK, UNKNOWN
     Route: 065
  12. DETROL [Concomitant]
     Dosage: UNK, UNKNOWN
     Route: 065
  13. CALCIUM [Concomitant]
     Dosage: UNK, UNKNOWN
     Route: 065

REACTIONS (1)
  - PNEUMOTHORAX [None]
